FAERS Safety Report 5352298-3 (Version None)
Quarter: 2007Q2

REPORT INFORMATION
  Report Type: 
  Country: None (occurrence: None)
  Receive Date: 20070607
  Receipt Date: 20070607
  Transmission Date: 20071010
  Serious: Yes (Hospitalization, Other)
  Sender: FDA-Public Use
  Company Number: None

PATIENT
  Age: 32 Year
  Sex: Female
  Weight: 43.0917 kg

DRUGS (2)
  1. MIRENA [Suspect]
     Indication: ENDOMETRIOSIS
     Dates: start: 20070320, end: 20070611
  2. TRAZODONE HCL [Suspect]
     Indication: INSOMNIA
     Dosage: 50 DAILY PO
     Route: 048

REACTIONS (12)
  - ACNE [None]
  - BACK PAIN [None]
  - COMPLICATION OF DEVICE INSERTION [None]
  - DEPRESSION [None]
  - HEADACHE [None]
  - METRORRHAGIA [None]
  - MOOD SWINGS [None]
  - MUSCLE SPASMS [None]
  - NAUSEA [None]
  - PAIN [None]
  - VAGINAL DISCHARGE [None]
  - WEIGHT INCREASED [None]
